FAERS Safety Report 11670686 (Version 1)
Quarter: 2015Q4

REPORT INFORMATION
  Report Type: Spontaneous
  Country: US (occurrence: US)
  Receive Date: 20151027
  Receipt Date: 20151027
  Transmission Date: 20160304
  Serious: No
  Sender: FDA-Public Use
  Company Number: US-ELI_LILLY_AND_COMPANY-US201002002662

PATIENT
  Age: 61 Year
  Sex: Female
  Weight: 47.17 kg

DRUGS (2)
  1. FORTEO [Suspect]
     Active Substance: TERIPARATIDE
     Indication: OSTEOPOROSIS
     Dosage: 20 UG, DAILY (1/D)
     Route: 065
     Dates: start: 20091219
  2. INSULIN [Concomitant]
     Active Substance: INSULIN NOS
     Dosage: UNK, UNKNOWN
     Route: 065

REACTIONS (3)
  - Injection site erythema [Not Recovered/Not Resolved]
  - Feeling of body temperature change [Unknown]
  - Scratch [Unknown]

NARRATIVE: CASE EVENT DATE: 201001
